FAERS Safety Report 6101468-5 (Version None)
Quarter: 2009Q1

REPORT INFORMATION
  Report Type: 
  Country: None (occurrence: None)
  Receive Date: 20090303
  Receipt Date: 20090303
  Transmission Date: 20090719
  Serious: Yes (Hospitalization)
  Sender: FDA-Public Use
  Company Number: None

PATIENT
  Age: 87 Year
  Sex: Female
  Weight: 47.5 kg

DRUGS (11)
  1. DIGOXIN [Suspect]
     Indication: ATRIAL FIBRILLATION
     Dosage: 0.125MG -LAST REFILL 0.25MG- DAILY PO CHRONIC
     Route: 048
  2. AMBIEN [Concomitant]
  3. ASPIRIN [Concomitant]
  4. COUMADIN [Concomitant]
  5. IRON [Concomitant]
  6. VITAMIN B-12 [Concomitant]
  7. LASIX [Concomitant]
  8. IRON [Concomitant]
  9. LIPITOR [Concomitant]
  10. LISINOPRIL -CHRONIC- [Concomitant]
  11. . [Concomitant]

REACTIONS (6)
  - DIZZINESS [None]
  - DRUG DISPENSING ERROR [None]
  - MEDICATION ERROR [None]
  - MENTAL STATUS CHANGES [None]
  - SYNCOPE [None]
  - THERAPEUTIC AGENT TOXICITY [None]
